FAERS Safety Report 9226905 (Version 1)
Quarter: 2013Q2

REPORT INFORMATION
  Report Type: Spontaneous
  Country: US (occurrence: None)
  Receive Date: 20130410
  Receipt Date: 20130410
  Transmission Date: 20140414
  Serious: Yes (Hospitalization)
  Sender: FDA-Public Use
  Company Number: SYM-2013-02644

PATIENT
  Age: 60 Year
  Sex: Female

DRUGS (4)
  1. WELLBUTRIN [Suspect]
     Indication: PRODUCT USED FOR UNKNOWN INDICATION
     Dates: end: 2013
  2. CYMBALTA [Suspect]
     Indication: MAJOR DEPRESSION
     Dates: start: 2011, end: 201301
  3. TRAZODONE (TRAZODONE) (TRAZODONE) [Concomitant]
  4. MULTIVITAMIN (VITAMINS NOS) (VITAMINS NOS) [Concomitant]

REACTIONS (16)
  - Migraine [None]
  - Feeling abnormal [None]
  - Nightmare [None]
  - Mania [None]
  - Agitation [None]
  - Influenza like illness [None]
  - Nausea [None]
  - Retching [None]
  - Diarrhoea [None]
  - Malaise [None]
  - Hypoaesthesia oral [None]
  - Paraesthesia [None]
  - Thinking abnormal [None]
  - Confusional state [None]
  - Dysarthria [None]
  - Panic attack [None]
